FAERS Safety Report 11488608 (Version 1)
Quarter: 2015Q3

REPORT INFORMATION
  Report Type: Spontaneous
  Country: US (occurrence: US)
  Receive Date: 20150910
  Receipt Date: 20150910
  Transmission Date: 20151125
  Serious: Yes (Other)
  Sender: FDA-Public Use
  Company Number: US-ROCHE-1050800

PATIENT
  Sex: Male

DRUGS (1)
  1. PEGASYS [Suspect]
     Active Substance: PEGINTERFERON ALFA-2A
     Indication: PRODUCT USED FOR UNKNOWN INDICATION
     Route: 065

REACTIONS (13)
  - Malaise [Unknown]
  - Skin ulcer [Recovered/Resolved]
  - Abdominal pain upper [Not Recovered/Not Resolved]
  - Seizure [Unknown]
  - Vomiting [Recovered/Resolved]
  - Bacterial infection [Recovered/Resolved]
  - General physical health deterioration [Unknown]
  - Liver disorder [Unknown]
  - Diarrhoea [Recovered/Resolved]
  - Bacillus infection [Unknown]
  - Pain [Not Recovered/Not Resolved]
  - Disease recurrence [Not Recovered/Not Resolved]
  - Product quality issue [Unknown]
